FAERS Safety Report 6959672-X (Version None)
Quarter: 2010Q3

REPORT INFORMATION
  Report Type: 
  Country: None (occurrence: None)
  Receive Date: 20100827
  Receipt Date: 20100818
  Transmission Date: 20110219
  Serious: Yes (Death, Hospitalization)
  Sender: FDA-Public Use
  Company Number: 2010MA001840

PATIENT
  Age: 57 Year
  Sex: Female

DRUGS (7)
  1. PHENYTOIN [Suspect]
     Indication: CONVULSION
  2. FUROSEMIDE (CON.) [Concomitant]
  3. VANCOMYCIN (CON.) [Concomitant]
  4. CIPROFLOXACIN (CON.) [Concomitant]
  5. AMPHOTERICIN (CON.) [Concomitant]
  6. METRONIDAZOLE (CON.) [Concomitant]
  7. AMIODARONE (CON.) [Concomitant]

REACTIONS (3)
  - CEREBROVASCULAR DISORDER [None]
  - LINEAR IGA DISEASE [None]
  - TOXIC EPIDERMAL NECROLYSIS [None]
